FAERS Safety Report 5277637-3 (Version None)
Quarter: 2007Q1

REPORT INFORMATION
  Report Type: 
  Country: None (occurrence: None)
  Receive Date: 20061213
  Receipt Date: 20050411
  Transmission Date: 20070707
  Serious: No
  Sender: FDA-Public Use
  Company Number: 2005UW03764

PATIENT
  Age: 67 Year
  Sex: Female
  Weight: 70.3075 kg

DRUGS (6)
  1. SEROQUEL [Suspect]
     Indication: PSYCHOTIC DISORDER
     Dates: start: 20040625
  2. SEROQUEL [Suspect]
     Indication: PSYCHOTIC DISORDER
     Dosage: 125 MG DAILY PO
     Route: 048
     Dates: start: 20040801, end: 20050225
  3. ARICEPT [Concomitant]
  4. AMBIEN [Concomitant]
  5. LEXAPRO [Concomitant]
  6. ASACOL [Concomitant]

REACTIONS (1)
  - WHITE BLOOD CELL COUNT DECREASED [None]
